FAERS Safety Report 8312711 (Version 9)
Quarter: 2012Q4

REPORT INFORMATION
  Report Type: 
  Country: US (occurrence: US)
  Receive Date: 20111227
  Receipt Date: 20120905
  Transmission Date: 20130627
  Serious: Yes (Hospitalization)
  Sender: FDA-Public Use
  Company Number: US-ACTELION-A-NJ2011-58808

PATIENT
  Age: 54 Year
  Sex: Female

DRUGS (4)
  1. TRACLEER [Suspect]
     Indication: PULMONARY ARTERIAL HYPERTENSION
     Dosage: UNK
     Route: 048
  2. VENTAVIS [Suspect]
     Indication: PULMONARY ARTERIAL HYPERTENSION
     Dosage: UNK
     Route: 055
  3. ASPIRIN [Concomitant]
  4. LASIX [Concomitant]

REACTIONS (12)
  - Blood pressure abnormal [Unknown]
  - Cardiac disorder [Unknown]
  - Lung disorder [Unknown]
  - Diabetes mellitus [Unknown]
  - Hypertension [Recovering/Resolving]
  - Impaired gastric emptying [Unknown]
  - Gastroenteritis viral [Unknown]
  - Balance disorder [Unknown]
  - Decubitus ulcer [Unknown]
  - Blood glucose abnormal [Unknown]
  - Dyspnoea [Unknown]
  - Loss of consciousness [Unknown]
